FAERS Safety Report 5649022-3 (Version None)
Quarter: 2008Q1

REPORT INFORMATION
  Report Type: 
  Country: None (occurrence: None)
  Receive Date: 20080303
  Receipt Date: 20080303
  Transmission Date: 20080703
  Serious: Yes (Other)
  Sender: FDA-Public Use
  Company Number: None

PATIENT
  Age: 57 Year
  Sex: Female
  Weight: 62.1428 kg

DRUGS (1)
  1. BONIVA [Suspect]
     Indication: OSTEOPOROSIS
     Dosage: 1 TABLET ONCE A MONTH PO ALMOST A MONTH
     Route: 048
     Dates: start: 20080221

REACTIONS (13)
  - ANXIETY [None]
  - COUGH [None]
  - DEPRESSION [None]
  - DYSGEUSIA [None]
  - EAR PAIN [None]
  - FATIGUE [None]
  - GENERAL PHYSICAL HEALTH DETERIORATION [None]
  - NECK PAIN [None]
  - POLLAKIURIA [None]
  - PRURITUS GENERALISED [None]
  - SINUS CONGESTION [None]
  - TEMPOROMANDIBULAR JOINT SYNDROME [None]
  - URTICARIA [None]
